FAERS Safety Report 20773358 (Version 1)
Quarter: 2022Q2

REPORT INFORMATION
  Report Type: Report from Study
  Country: CN (occurrence: CN)
  Receive Date: 20220502
  Receipt Date: 20220502
  Transmission Date: 20220720
  Serious: Yes (Hospitalization, Other)
  Sender: FDA-Public Use
  Company Number: CN-BRISTOL-MYERS SQUIBB COMPANY-2022-027129

PATIENT
  Age: 66 Year
  Sex: Male

DRUGS (3)
  1. OPDIVO [Suspect]
     Active Substance: NIVOLUMAB
     Indication: Lung neoplasm malignant
     Route: 041
     Dates: start: 20211110
  2. OPDIVO [Suspect]
     Active Substance: NIVOLUMAB
     Indication: Gastric cancer
  3. OPDIVO [Suspect]
     Active Substance: NIVOLUMAB
     Indication: Gastric cancer

REACTIONS (2)
  - Lung perforation [Recovering/Resolving]
  - Off label use [Unknown]
